FAERS Safety Report 9170178 (Version 1)
Quarter: 2013Q1

REPORT INFORMATION
  Report Type: Spontaneous
  Country: AR (occurrence: AR)
  Receive Date: 20130319
  Receipt Date: 20130319
  Transmission Date: 20140127
  Serious: Yes (Hospitalization, Other)
  Sender: FDA-Public Use
  Company Number: PHHY2013AR025767

PATIENT
  Sex: Male

DRUGS (1)
  1. EXFORGE D [Suspect]
     Indication: HYPERTENSION
     Dosage: 1 DF, (320 MG VALS/ 10 MG AMLO/ 25MG HYDRO) DAILY
     Route: 048
     Dates: start: 201302

REACTIONS (1)
  - Gallbladder polyp [Recovering/Resolving]
